FAERS Safety Report 4816062-3 (Version None)
Quarter: 2005Q4

REPORT INFORMATION
  Report Type: 
  Country: None (occurrence: None)
  Receive Date: 20051026
  Receipt Date: 20051013
  Transmission Date: 20060501
  Serious: Yes (Hospitalization)
  Sender: FDA-Public Use
  Company Number: 2005S1000305

PATIENT
  Age: 45 Year
  Sex: Female

DRUGS (3)
  1. SORIATANE [Suspect]
     Indication: PSORIASIS
     Dosage: 20 MG; QD; PO
     Route: 048
     Dates: start: 20050720, end: 20050830
  2. INFLIXIMAB (INFLIXIMAB) [Suspect]
     Indication: PSORIATIC ARTHROPATHY
     Dosage: IV
     Route: 042
     Dates: start: 20040101, end: 20050101
  3. METHOTREXATE [Concomitant]

REACTIONS (1)
  - ANGIONEUROTIC OEDEMA [None]
